FAERS Safety Report 17362993 (Version 1)
Quarter: 2020Q1

REPORT INFORMATION
  Report Type: Spontaneous
  Country: DE (occurrence: DE)
  Receive Date: 20200203
  Receipt Date: 20200203
  Transmission Date: 20200409
  Serious: Yes (Other)
  Sender: FDA-Public Use
  Company Number: DE-MYLANLABS-2020M1011525

PATIENT
  Age: 47 Year
  Sex: Female

DRUGS (5)
  1. SIMONETTE [Concomitant]
     Dosage: ANWENDUNG SEIT JAHREN
  2. DOXEPIN [Suspect]
     Active Substance: DOXEPIN
     Indication: DEPRESSION
     Dosage: 50 MILLIGRAM, QD
     Dates: start: 20180717, end: 20180723
  3. DOXEPIN [Suspect]
     Active Substance: DOXEPIN
     Dosage: 75 - 225 MG
     Dates: start: 201803, end: 20180709
  4. DOXEPIN [Suspect]
     Active Substance: DOXEPIN
     Dosage: 150 MILLIGRAM, QD
     Dates: start: 20180710, end: 20180716
  5. L-THYROXIN                         /00068001/ [Concomitant]
     Active Substance: LEVOTHYROXINE
     Dosage: ANWENDUNG SEIT JAHREN

REACTIONS (2)
  - Weight increased [Not Recovered/Not Resolved]
  - Increased appetite [Unknown]

NARRATIVE: CASE EVENT DATE: 2018
